FAERS Safety Report 10026928 (Version 1)
Quarter: 2014Q1

REPORT INFORMATION
  Report Type: Spontaneous
  Country: GB (occurrence: None)
  Receive Date: 20140318
  Receipt Date: 20140318
  Transmission Date: 20141002
  Serious: Yes (Hospitalization, Other)
  Sender: FDA-Public Use
  Company Number: AUR-APL-2014-02684

PATIENT
  Age: 81 Year
  Sex: Female

DRUGS (1)
  1. CLOPIDOGREL [Suspect]
     Indication: TRANSIENT ISCHAEMIC ATTACK
     Dates: start: 201310

REACTIONS (6)
  - Malaise [None]
  - Hepatitis [None]
  - Carpal tunnel syndrome [None]
  - Dupuytren^s contracture [None]
  - Activities of daily living impaired [None]
  - Asthenia [None]
